FAERS Safety Report 7042891 (Version 2)
Quarter: 2013Q4

REPORT INFORMATION
  Report Type: Report from Study
  Country: CA (occurrence: CA)
  Receive Date: 20090707
  Receipt Date: 20131010
  Transmission Date: 20140711
  Serious: Yes (Other)
  Sender: FDA-Public Use
  Company Number: CA-ROCHE-641776

PATIENT
  Age: 56 Year
  Sex: Male

DRUGS (2)
  1. ENFUVIRTIDE [Suspect]
     Indication: HIV INFECTION
     Route: 058
  2. RALTEGRAVIR [Suspect]
     Indication: HIV INFECTION
     Route: 048

REACTIONS (5)
  - Depression [Unknown]
  - Prostate cancer [Unknown]
  - Diarrhoea [Unknown]
  - Injection site reaction [Recovered/Resolved]
  - Neuropathy peripheral [Unknown]
